FAERS Safety Report 8795541 (Version 1)
Quarter: 2012Q4

REPORT INFORMATION
  Report Type: 
  Country: SE (occurrence: SE)
  Receive Date: 20120917
  Receipt Date: 20120917
  Transmission Date: 20130627
  Serious: Yes (Hospitalization)
  Sender: FDA-Public Use
  Company Number: SE-ASTRAZENECA-2012SE70354

PATIENT
  Age: 73 Year
  Sex: Female

DRUGS (8)
  1. MARCAIN SPINAL [Suspect]
     Route: 037
     Dates: start: 20120104, end: 20120104
  2. FENTANYL [Concomitant]
     Route: 065
  3. METFORMIN [Concomitant]
     Route: 048
  4. METOPROLOL [Concomitant]
     Route: 065
  5. LIPITOR [Concomitant]
     Route: 065
  6. ENALAPRIL [Concomitant]
     Route: 065
  7. INSULATARD [Concomitant]
     Route: 065
  8. HUMALOG [Concomitant]
     Route: 065

REACTIONS (7)
  - Gait disturbance [Recovered/Resolved with Sequelae]
  - Reflexes abnormal [Recovered/Resolved with Sequelae]
  - Constipation [Unknown]
  - Chest pain [Unknown]
  - Urinary tract infection [Unknown]
  - Intervertebral disc protrusion [Unknown]
  - Neurogenic bladder [Unknown]
